FAERS Safety Report 23377802 (Version 1)
Quarter: 2024Q1

REPORT INFORMATION
  Report Type: Spontaneous
  Country: US (occurrence: None)
  Receive Date: 20240105
  Receipt Date: 20240105
  Transmission Date: 20240409
  Serious: Yes (unspecified)
  Sender: FDA-Public Use
  Company Number: None

PATIENT
  Age: 72 Year
  Sex: Female
  Weight: 71.1 kg

DRUGS (6)
  1. CIPROFLOXACIN HYDROCHLORIDE\DEXAMETHASONE [Suspect]
     Active Substance: CIPROFLOXACIN HYDROCHLORIDE\DEXAMETHASONE
     Indication: Ear infection
     Dosage: OTHER QUANTITY : 4 DROP(S);?FREQUENCY : EVERY 12 HOURS;?
     Route: 001
     Dates: start: 20231226, end: 20231230
  2. LOSARTAN [Concomitant]
     Active Substance: LOSARTAN
  3. AMLODIPINE [Concomitant]
     Active Substance: AMLODIPINE BESYLATE
  4. OTEZLA [Concomitant]
     Active Substance: APREMILAST
  5. SIMVASTATIN [Concomitant]
     Active Substance: SIMVASTATIN
  6. D3 VITAMIN [Concomitant]

REACTIONS (1)
  - Ear pain [None]

NARRATIVE: CASE EVENT DATE: 20231230
